FAERS Safety Report 15939643 (Version 1)
Quarter: 2019Q1

REPORT INFORMATION
  Report Type: Spontaneous
  Country: US (occurrence: US)
  Receive Date: 20190208
  Receipt Date: 20190208
  Transmission Date: 20190417
  Serious: No
  Sender: FDA-Public Use
  Company Number: US-009507513-1902USA003267

PATIENT
  Age: 16 Year
  Sex: Female
  Weight: 48.89 kg

DRUGS (1)
  1. NEXPLANON [Suspect]
     Active Substance: ETONOGESTREL
     Indication: CONTRACEPTION
     Dosage: 1 IMPLANT EVERY 3 YEARS, IN THE LEFT ARM
     Route: 059
     Dates: start: 20180510

REACTIONS (3)
  - Metrorrhagia [Not Recovered/Not Resolved]
  - Mood swings [Not Recovered/Not Resolved]
  - Weight increased [Not Recovered/Not Resolved]

NARRATIVE: CASE EVENT DATE: 20180510
